FAERS Safety Report 18442196 (Version 1)
Quarter: 2020Q4

REPORT INFORMATION
  Report Type: Spontaneous
  Country: JP (occurrence: JP)
  Receive Date: 20201029
  Receipt Date: 20201029
  Transmission Date: 20210114
  Serious: Yes (Other)
  Sender: FDA-Public Use
  Company Number: JP-009507513-2010JPN001708J

PATIENT
  Age: 34 Year
  Sex: Female

DRUGS (1)
  1. KEYTRUDA [Suspect]
     Active Substance: PEMBROLIZUMAB
     Indication: HODGKIN^S DISEASE
     Dosage: 30 MILLIGRAM
     Route: 041
     Dates: start: 20201007

REACTIONS (2)
  - Graft versus host disease in skin [Unknown]
  - Intentional underdose [Unknown]

NARRATIVE: CASE EVENT DATE: 202010
